FAERS Safety Report 22530797 (Version 3)
Quarter: 2023Q2

REPORT INFORMATION
  Report Type: Spontaneous
  Country: ES (occurrence: ES)
  Receive Date: 20230607
  Receipt Date: 20230616
  Transmission Date: 20230721
  Serious: Yes (Hospitalization, Other)
  Sender: FDA-Public Use
  Company Number: ES-Almus S.r.l.-ES-NIC-23-00145

PATIENT
  Age: 71 Year
  Sex: Female

DRUGS (12)
  1. GABAPENTIN [Suspect]
     Active Substance: GABAPENTIN
     Indication: Lumbar spinal stenosis
     Dosage: 300 MILLIGRAM, QD
     Route: 065
     Dates: start: 2010, end: 2012
  2. GABAPENTIN [Suspect]
     Active Substance: GABAPENTIN
     Indication: Lumbar spinal stenosis
     Dosage: 600 MILLIGRAM, QD
     Dates: start: 2012, end: 201305
  3. GABAPENTIN [Suspect]
     Active Substance: GABAPENTIN
     Dosage: 800 MILLIGRAM, QD
     Route: 065
     Dates: start: 201305, end: 2013
  4. GABAPENTIN [Suspect]
     Active Substance: GABAPENTIN
     Dosage: 0-0-100
     Route: 065
     Dates: start: 2013
  5. AMITRIPTYLINE [Suspect]
     Active Substance: AMITRIPTYLINE
     Indication: Sciatica
     Dosage: UNK
     Dates: start: 2010, end: 2013
  6. CLORAZEPATE MONOPOTASSIUM [Suspect]
     Active Substance: CLORAZEPATE MONOPOTASSIUM
     Indication: Mixed anxiety and depressive disorder
     Dosage: 1 DF, 1X/DAY
     Route: 048
     Dates: start: 2013, end: 2013
  7. CLORAZEPATE MONOPOTASSIUM [Suspect]
     Active Substance: CLORAZEPATE MONOPOTASSIUM
     Dosage: 10-0-10
     Route: 065
     Dates: start: 2013, end: 2013
  8. CLORAZEPATE MONOPOTASSIUM [Suspect]
     Active Substance: CLORAZEPATE MONOPOTASSIUM
     Dosage: 5-5-10
     Route: 048
     Dates: start: 2013
  9. LORAZEPAM [Concomitant]
     Active Substance: LORAZEPAM
     Indication: Anxiety
     Dosage: UNK
     Dates: start: 2013, end: 2013
  10. CITALOPRAM [Concomitant]
     Active Substance: CITALOPRAM HYDROBROMIDE
     Indication: Anxiety
     Dosage: UNK
     Dates: start: 2013
  11. TRAZODONE [Concomitant]
     Active Substance: TRAZODONE HYDROCHLORIDE
     Indication: Adjustment disorder with mixed disturbance of emotion and conduct
     Dosage: UNK
     Dates: start: 2013
  12. ACETAMINOPHEN [Concomitant]
     Active Substance: ACETAMINOPHEN
     Indication: Sciatica
     Dosage: UNK
     Dates: start: 2010

REACTIONS (4)
  - Hallucination, auditory [Recovered/Resolved]
  - Suicidal ideation [Recovered/Resolved]
  - Adjustment disorder with mixed anxiety and depressed mood [Not Recovered/Not Resolved]
  - Hypoaesthesia [Unknown]

NARRATIVE: CASE EVENT DATE: 20130101
